FAERS Safety Report 4301537-6 (Version None)
Quarter: 2004Q1

REPORT INFORMATION
  Report Type: 
  Country: None (occurrence: None)
  Receive Date: 20040126
  Receipt Date: 20031001
  Transmission Date: 20041129
  Serious: No
  Sender: FDA-Public Use
  Company Number: USA031048727

PATIENT
  Age: 10 Year
  Sex: Female

DRUGS (2)
  1. STRATTERA [Suspect]
     Indication: ATTENTION DEFICIT/HYPERACTIVITY DISORDER
     Dosage: 18 MG/1 IN THE MORNING
     Dates: start: 20030924
  2. ADDERALL 10 [Concomitant]

REACTIONS (2)
  - DRUG INEFFECTIVE [None]
  - NERVOUSNESS [None]
